FAERS Safety Report 19901205 (Version 1)
Quarter: 2021Q3

REPORT INFORMATION
  Report Type: Spontaneous
  Country: US (occurrence: US)
  Receive Date: 20210930
  Receipt Date: 20210930
  Transmission Date: 20211014
  Serious: Yes (Hospitalization)
  Sender: FDA-Public Use
  Company Number: US-ASTRAZENECA-2021A737802

PATIENT
  Age: 979 Month
  Sex: Female
  Weight: 90.7 kg

DRUGS (1)
  1. BYETTA [Suspect]
     Active Substance: EXENATIDE
     Indication: TYPE 2 DIABETES MELLITUS
     Route: 065

REACTIONS (14)
  - Spinal fracture [Unknown]
  - Tremor [Unknown]
  - Anxiety [Unknown]
  - Device malfunction [Unknown]
  - Hypersensitivity [Unknown]
  - Blood glucose increased [Unknown]
  - Urinary tract infection [Unknown]
  - Arthritis [Unknown]
  - Somnolence [Unknown]
  - Fall [Unknown]
  - Illness [Unknown]
  - Peripheral coldness [Unknown]
  - Dizziness [Unknown]
  - Drug dose omission by device [Unknown]

NARRATIVE: CASE EVENT DATE: 202104
